FAERS Safety Report 25358387 (Version 1)
Quarter: 2025Q2

REPORT INFORMATION
  Report Type: Spontaneous
  Country: DE (occurrence: DE)
  Receive Date: 20250526
  Receipt Date: 20250526
  Transmission Date: 20250716
  Serious: Yes (Life-Threatening, Hospitalization, Other)
  Sender: ALEXION PHARMACEUTICALS
  Company Number: DE-SA-2024SA302428

PATIENT
  Age: 6 Week
  Weight: 2.5 kg

DRUGS (2)
  1. NIRSEVIMAB [Suspect]
     Active Substance: NIRSEVIMAB
     Indication: Respiratory syncytial virus immunisation
     Dosage: 50 MG, QD
  2. DEVICE [Suspect]
     Active Substance: DEVICE
     Indication: Respiratory syncytial virus immunisation

REACTIONS (2)
  - Infantile apnoea [Not Recovered/Not Resolved]
  - Neonatal hypoxia [Unknown]
